FAERS Safety Report 9847442 (Version 1)
Quarter: 2014Q1

REPORT INFORMATION
  Report Type: Spontaneous
  Country: US (occurrence: US)
  Receive Date: 20140127
  Receipt Date: 20140127
  Transmission Date: 20141002
  Serious: No
  Sender: FDA-Public Use
  Company Number: US-009507513-1401USA007366

PATIENT
  Sex: Female
  Weight: 117.91 kg

DRUGS (1)
  1. IMPLANON [Suspect]
     Dosage: 1 ROD/ 3 YEARS
     Route: 059
     Dates: start: 20120510

REACTIONS (2)
  - Device breakage [Unknown]
  - No adverse event [Unknown]
